FAERS Safety Report 5810306-7 (Version None)
Quarter: 2008Q3

REPORT INFORMATION
  Report Type: 
  Country: None (occurrence: None)
  Receive Date: 20080715
  Receipt Date: 20080318
  Transmission Date: 20090109
  Serious: No
  Sender: FDA-Public Use
  Company Number: A0716212A

PATIENT
  Age: 59 Year
  Sex: Female

DRUGS (3)
  1. IMITREX [Suspect]
     Indication: MIGRAINE
     Dosage: 100MG AS REQUIRED
     Route: 048
     Dates: start: 19950101
  2. NEXIUM [Concomitant]
  3. BONIVA [Concomitant]

REACTIONS (4)
  - FEELING ABNORMAL [None]
  - HANGOVER [None]
  - HYPOAESTHESIA [None]
  - LETHARGY [None]
